FAERS Safety Report 22622196 (Version 1)
Quarter: 2023Q2

REPORT INFORMATION
  Report Type: Spontaneous
  Country: GB (occurrence: None)
  Receive Date: 20230620
  Receipt Date: 20230620
  Transmission Date: 20230722
  Serious: Yes (Other)
  Sender: FDA-Public Use
  Company Number: 2023A142624

PATIENT
  Sex: Male

DRUGS (2)
  1. GEFITINIB [Suspect]
     Active Substance: GEFITINIB
     Route: 048
     Dates: start: 201712, end: 201809
  2. PEMETREXED/CARBOPLATIN [Concomitant]

REACTIONS (6)
  - Malignant neoplasm progression [Unknown]
  - Metastases to lung [Unknown]
  - Metastases to pleura [Unknown]
  - EGFR gene mutation [Unknown]
  - Impaired quality of life [Unknown]
  - Skin toxicity [Unknown]
